FAERS Safety Report 21211772 (Version 1)
Quarter: 2022Q3

REPORT INFORMATION
  Report Type: Spontaneous
  Country: US (occurrence: US)
  Receive Date: 20220815
  Receipt Date: 20220815
  Transmission Date: 20221026
  Serious: No
  Sender: FDA-Public Use
  Company Number: US-BEH-2022148378

PATIENT
  Sex: Female

DRUGS (4)
  1. HIZENTRA [Suspect]
     Active Substance: HUMAN IMMUNOGLOBULIN G
     Indication: Immunodeficiency common variable
     Dosage: 20 GRAM, QOW
     Route: 058
     Dates: start: 20151217
  2. HIZENTRA [Suspect]
     Active Substance: HUMAN IMMUNOGLOBULIN G
     Dosage: UNK
     Route: 058
  3. NIACIN [Concomitant]
     Active Substance: NIACIN
  4. NIACIN NO FLUSH [Concomitant]

REACTIONS (5)
  - Pruritus [Unknown]
  - Rash papular [Unknown]
  - Erythema [Unknown]
  - Rash [Unknown]
  - Mass [Unknown]
